FAERS Safety Report 25159598 (Version 1)
Quarter: 2025Q2

REPORT INFORMATION
  Report Type: Spontaneous
  Country: JP (occurrence: JP)
  Receive Date: 20250404
  Receipt Date: 20250404
  Transmission Date: 20250716
  Serious: Yes (Other)
  Sender: BIOVITRUM
  Company Number: JP-BIOVITRUM-2025-JP-002144

PATIENT
  Age: 8 Decade
  Sex: Male

DRUGS (2)
  1. DOPTELET [Suspect]
     Active Substance: AVATROMBOPAG MALEATE
     Indication: Liver disorder
     Route: 048
  2. DOPTELET [Suspect]
     Active Substance: AVATROMBOPAG MALEATE
     Route: 048
     Dates: start: 20240705, end: 20240709

REACTIONS (3)
  - Portal vein thrombosis [Recovered/Resolved]
  - Angina pectoris [Unknown]
  - Diabetes mellitus [Unknown]
